FAERS Safety Report 16305490 (Version 1)
Quarter: 2019Q2

REPORT INFORMATION
  Report Type: Spontaneous
  Country: US (occurrence: US)
  Receive Date: 20190408
  Receipt Date: 20190408
  Transmission Date: 20190711
  Serious: No
  Sender: FDA-Public Use
  Company Number: None

PATIENT
  Age: 54 Year
  Sex: Female

DRUGS (1)
  1. COPAXONE [Suspect]
     Active Substance: GLATIRAMER ACETATE
     Dosage: ?          OTHER FREQUENCY:OTHER;?
     Route: 058
     Dates: start: 20170601

REACTIONS (6)
  - Injection site erythema [None]
  - Urticaria [None]
  - Chills [None]
  - Therapy cessation [None]
  - Injection site reaction [None]
  - Post procedural complication [None]

NARRATIVE: CASE EVENT DATE: 20190408
